FAERS Safety Report 6558674-5 (Version None)
Quarter: 2010Q1

REPORT INFORMATION
  Report Type: 
  Country: None (occurrence: None)
  Receive Date: 20100128
  Receipt Date: 20100128
  Transmission Date: 20100710
  Serious: Yes (Hospitalization)
  Sender: FDA-Public Use
  Company Number: None

PATIENT
  Age: 88 Year
  Sex: Male

DRUGS (2)
  1. WARFARIN SODIUM [Suspect]
     Indication: ATRIAL FIBRILLATION
     Dosage: 1-2 MG EVERY DAY PO
     Route: 048
     Dates: start: 20050901
  2. FLUCONAZOLE [Suspect]
     Dosage: 100 MG EVERY DAY PO
     Route: 048
     Dates: start: 20091007, end: 20091018

REACTIONS (5)
  - ANAEMIA [None]
  - GASTRIC HAEMORRHAGE [None]
  - HAEMORRHOIDS [None]
  - INTERNATIONAL NORMALISED RATIO INCREASED [None]
  - LOWER GASTROINTESTINAL HAEMORRHAGE [None]
